FAERS Safety Report 24012031 (Version 1)
Quarter: 2024Q2

REPORT INFORMATION
  Report Type: Spontaneous
  Country: US (occurrence: US)
  Receive Date: 20240625
  Receipt Date: 20240625
  Transmission Date: 20240716
  Serious: No
  Sender: FDA-Public Use
  Company Number: US-SA-SAC20240620000711

PATIENT
  Age: 68 Year
  Sex: Female
  Weight: 77.11 kg

DRUGS (2)
  1. DUPIXENT [Suspect]
     Active Substance: DUPILUMAB
     Indication: Dermatitis atopic
     Dosage: 300 MG, QOW
     Route: 058
     Dates: start: 202403
  2. LYRICA [Concomitant]
     Active Substance: PREGABALIN

REACTIONS (10)
  - Sleep disorder [Unknown]
  - Formication [Unknown]
  - Injection site pain [Unknown]
  - Dermatitis atopic [Unknown]
  - Scar [Unknown]
  - Skin haemorrhage [Unknown]
  - Skin weeping [Unknown]
  - Dry skin [Unknown]
  - Skin fissures [Unknown]
  - Pruritus [Not Recovered/Not Resolved]

NARRATIVE: CASE EVENT DATE: 20240101
